FAERS Safety Report 21851851 (Version 2)
Quarter: 2023Q1

REPORT INFORMATION
  Report Type: Report from Study
  Country: US (occurrence: US)
  Receive Date: 20230112
  Receipt Date: 20230324
  Transmission Date: 20230418
  Serious: Yes (Other)
  Sender: FDA-Public Use
  Company Number: US-ABBVIE-4266941

PATIENT
  Sex: Female

DRUGS (3)
  1. HUMIRA [Suspect]
     Active Substance: ADALIMUMAB
     Indication: Rheumatoid arthritis
     Dosage: CF PEN ?DRUG END DATE 2022
     Route: 058
     Dates: start: 20220901
  2. HUMIRA [Suspect]
     Active Substance: ADALIMUMAB
     Dosage: CF PEN
     Route: 058
     Dates: start: 2023
  3. PREDNISONE [Concomitant]
     Active Substance: PREDNISONE
     Indication: Product used for unknown indication

REACTIONS (15)
  - Myocardial infarction [Unknown]
  - Bronchitis [Not Recovered/Not Resolved]
  - Bronchitis [Recovering/Resolving]
  - Therapeutic product effect incomplete [Not Recovered/Not Resolved]
  - Influenza [Recovering/Resolving]
  - Peripheral swelling [Not Recovered/Not Resolved]
  - Musculoskeletal stiffness [Not Recovered/Not Resolved]
  - Sepsis [Not Recovered/Not Resolved]
  - Neck pain [Not Recovered/Not Resolved]
  - Chest pain [Not Recovered/Not Resolved]
  - Pain in jaw [Not Recovered/Not Resolved]
  - Arthralgia [Unknown]
  - Hypoaesthesia [Unknown]
  - Limb discomfort [Unknown]
  - Joint swelling [Not Recovered/Not Resolved]

NARRATIVE: CASE EVENT DATE: 20190101
